FAERS Safety Report 14319958 (Version 1)
Quarter: 2017Q4

REPORT INFORMATION
  Report Type: Spontaneous
  Country: FR (occurrence: FR)
  Receive Date: 20171222
  Receipt Date: 20171222
  Transmission Date: 20180321
  Serious: Yes (Hospitalization)
  Sender: FDA-Public Use
  Company Number: FR-PFIZER INC-2017545730

PATIENT
  Age: 54 Year
  Sex: Male
  Weight: 101 kg

DRUGS (9)
  1. XANAX [Suspect]
     Active Substance: ALPRAZOLAM
     Indication: BACK PAIN
     Dosage: 0.25 MG, 1X/DAY
     Route: 048
     Dates: start: 20171102, end: 20171106
  2. KETOPROFEN. [Suspect]
     Active Substance: KETOPROFEN
     Indication: BACK PAIN
     Dosage: 200 MG, 1X/DAY
     Route: 048
     Dates: start: 20171102, end: 20171106
  3. VOLTARENE [Suspect]
     Active Substance: DICLOFENAC SODIUM
     Indication: BACK PAIN
     Dosage: 2 DF, 1X/DAY
     Route: 003
     Dates: start: 20171102, end: 20171106
  4. CODOLIPRANE [Suspect]
     Active Substance: ACETAMINOPHEN\CODEINE PHOSPHATE
     Indication: BACK PAIN
     Dosage: UNK
     Route: 048
     Dates: start: 20171102, end: 20171106
  5. INEXIUM [Suspect]
     Active Substance: ESOMEPRAZOLE
     Indication: PROPHYLAXIS AGAINST GASTROINTESTINAL ULCER
     Dosage: 20 MG, 1X/DAY
     Route: 048
     Dates: start: 20171025, end: 201711
  6. LAMALINE [Suspect]
     Active Substance: ACETAMINOPHEN\CAFFEINE\OPIUM
     Indication: BACK PAIN
     Dosage: 3 DF, AS NEEDED
     Route: 048
     Dates: start: 20171025, end: 20171101
  7. APRANAX [Suspect]
     Active Substance: NAPROXEN
     Indication: BACK PAIN
     Dosage: 1100 MG, 1X/DAY
     Route: 048
     Dates: start: 20171025, end: 20171101
  8. LUMIRELAX [Suspect]
     Active Substance: METHOCARBAMOL
     Indication: BACK PAIN
     Dosage: 3 G, 1X/DAY
     Route: 048
     Dates: start: 20171025, end: 20171030
  9. DOLIPRANE [Suspect]
     Active Substance: ACETAMINOPHEN
     Indication: BACK PAIN
     Dosage: 3 G, AS NEEDED
     Route: 048
     Dates: start: 20171025, end: 201711

REACTIONS (3)
  - Hepatitis cholestatic [Recovering/Resolving]
  - Colitis [Not Recovered/Not Resolved]
  - Acute kidney injury [Recovering/Resolving]

NARRATIVE: CASE EVENT DATE: 20171106
